FAERS Safety Report 6399680-3 (Version None)
Quarter: 2009Q4

REPORT INFORMATION
  Report Type: 
  Country: None (occurrence: None)
  Receive Date: 20091014
  Receipt Date: 20091006
  Transmission Date: 20100525
  Serious: Yes (Other)
  Sender: FDA-Public Use
  Company Number: US-ROCHE-654344

PATIENT
  Sex: Male
  Weight: 65.8 kg

DRUGS (1)
  1. CAPECITABINE [Suspect]
     Dosage: DOSE REPORTED AS 3 PIN, DAY 1-14, Q3 WEEKS
     Route: 048
     Dates: start: 20090616

REACTIONS (2)
  - PAIN [None]
  - TUMOUR MARKER INCREASED [None]
